FAERS Safety Report 10062727 (Version 1)
Quarter: 2014Q2

REPORT INFORMATION
  Report Type: Spontaneous
  Country: US (occurrence: US)
  Receive Date: 20140407
  Receipt Date: 20140407
  Transmission Date: 20141212
  Serious: Yes (Death)
  Sender: FDA-Public Use
  Company Number: US-GLAXOSMITHKLINE-A1068262A

PATIENT
  Age: 83 Year
  Sex: Female

DRUGS (1)
  1. VOTRIENT [Suspect]
     Indication: THYROID CANCER
     Dosage: 800MG PER DAY
     Route: 048
     Dates: start: 20140131

REACTIONS (2)
  - Disease progression [Fatal]
  - Off label use [Unknown]
